FAERS Safety Report 6182763-0 (Version None)
Quarter: 2009Q2

REPORT INFORMATION
  Report Type: 
  Country: None (occurrence: None)
  Receive Date: 20090505
  Receipt Date: 20090420
  Transmission Date: 20091009
  Serious: Yes (Disabling, Other)
  Sender: FDA-Public Use
  Company Number: 2009S1006800

PATIENT
  Age: 53 Year
  Sex: Female

DRUGS (1)
  1. TAMOXIFEN (TAMOXTFEN) [Suspect]
     Indication: BREAST CANCER
     Dosage: 20 MG; DAILY

REACTIONS (2)
  - MACULAR CYST [None]
  - MACULOPATHY [None]
